FAERS Safety Report 5330398-1 (Version None)
Quarter: 2007Q2

REPORT INFORMATION
  Report Type: 
  Country: None (occurrence: None)
  Receive Date: 20070521
  Receipt Date: 20070518
  Transmission Date: 20071010
  Serious: Yes (Hospitalization)
  Sender: FDA-Public Use
  Company Number: BE-ROXANE LABORATORIES, INC-2007-BP-06823RO

PATIENT
  Age: 56 Year
  Sex: Female

DRUGS (1)
  1. PSEUDOEPHEDRINE HCL [Suspect]
     Indication: RHINITIS ALLERGIC
     Route: 048

REACTIONS (8)
  - ENERGY INCREASED [None]
  - EUPHORIC MOOD [None]
  - FLIGHT OF IDEAS [None]
  - HYPERTENSION [None]
  - INSOMNIA [None]
  - LOGORRHOEA [None]
  - MANIA [None]
  - SELF ESTEEM INFLATED [None]
